FAERS Safety Report 18415014 (Version 2)
Quarter: 2020Q4

REPORT INFORMATION
  Report Type: Spontaneous
  Country: US (occurrence: US)
  Receive Date: 20201022
  Receipt Date: 20201111
  Transmission Date: 20210114
  Serious: No
  Sender: FDA-Public Use
  Company Number: US-PFIZER INC-2020272175

PATIENT
  Age: 70 Year
  Sex: Female
  Weight: 70.31 kg

DRUGS (2)
  1. TOVIAZ [Suspect]
     Active Substance: FESOTERODINE FUMARATE
     Indication: INCONTINENCE
     Dosage: 8 MG, 1X/DAY
     Route: 048
  2. TOVIAZ [Suspect]
     Active Substance: FESOTERODINE FUMARATE
     Dosage: 4 MG, 2X/DAY (2 IN THE MORNING OR TAKING ONE IN THE MORNING AND ONE LATER ON IN THE DAY.)
     Dates: start: 202008, end: 2020

REACTIONS (3)
  - Off label use [Unknown]
  - Dry mouth [Unknown]
  - Product prescribing issue [Unknown]

NARRATIVE: CASE EVENT DATE: 202008
